FAERS Safety Report 5808291-7 (Version None)
Quarter: 2008Q3

REPORT INFORMATION
  Report Type: 
  Country: None (occurrence: None)
  Receive Date: 20080710
  Receipt Date: 20080619
  Transmission Date: 20090109
  Serious: Yes (Death)
  Sender: FDA-Public Use
  Company Number: 2008SU0150

PATIENT
  Age: 35 Year
  Sex: Female

DRUGS (1)
  1. SULAR [Suspect]

REACTIONS (1)
  - SYNCOPE [None]
